FAERS Safety Report 7097263-3 (Version None)
Quarter: 2010Q4

REPORT INFORMATION
  Report Type: 
  Country: None (occurrence: None)
  Receive Date: 20101111
  Receipt Date: 20080610
  Transmission Date: 20110411
  Serious: No
  Sender: FDA-Public Use
  Company Number: US-KINGPHARMUSA00001-K200800682

PATIENT
  Age: 40 Year
  Sex: Female
  Weight: 67.12 kg

DRUGS (1)
  1. BICILLIN L-A [Suspect]
     Indication: LYME DISEASE
     Dosage: UNK, BIW
     Route: 030
     Dates: start: 20080603

REACTIONS (5)
  - ASTHENIA [None]
  - DIZZINESS [None]
  - FEELING ABNORMAL [None]
  - FLUSHING [None]
  - PALPITATIONS [None]
